FAERS Safety Report 7297840-0 (Version None)
Quarter: 2011Q1

REPORT INFORMATION
  Report Type: 
  Country: None (occurrence: None)
  Receive Date: 20110217
  Receipt Date: 20110207
  Transmission Date: 20110831
  Serious: Yes (Death)
  Sender: FDA-Public Use
  Company Number: US-BAYER-200931219NA

PATIENT
  Sex: Female
  Weight: 56 kg

DRUGS (18)
  1. COUMADIN [Concomitant]
     Dosage: 2 MG (DAILY DOSE), , ORAL
     Route: 048
  2. TOPROL-XL [Concomitant]
  3. OMNISCAN [Suspect]
     Dosage: 6 ML (DAILY DOSE), , INTRAVENOUS
     Route: 042
     Dates: start: 20060717, end: 20060717
  4. DURAGESIC-50 [Concomitant]
     Indication: PAIN
  5. NITROGLYCERIN [Concomitant]
     Indication: PAIN
     Route: 060
  6. MAGNEVIST [Suspect]
     Indication: ANGIOGRAM
     Route: 042
     Dates: start: 20061207, end: 20061207
  7. GADOLINIUM IN UNSPECIFIED DRUG [Suspect]
     Indication: VENOGRAM
     Dates: start: 20060421, end: 20060421
  8. ENALAPRIL [Concomitant]
  9. MAGNEVIST [Suspect]
     Indication: FISTULOGRAM
  10. SIMVASTATIN [Concomitant]
  11. EPOGEN [Concomitant]
     Indication: DIALYSIS
     Route: 058
  12. MULTIHANCE [Suspect]
     Indication: PRODUCT USED FOR UNKNOWN INDICATION
  13. OPTIMARK [Suspect]
     Indication: PRODUCT USED FOR UNKNOWN INDICATION
  14. AMIODARONE [Concomitant]
     Route: 048
  15. OMNISCAN [Suspect]
     Indication: FISTULOGRAM
     Route: 042
     Dates: start: 20060128, end: 20060128
  16. PROHANCE [Suspect]
     Indication: PRODUCT USED FOR UNKNOWN INDICATION
  17. OMNISCAN [Suspect]
     Indication: VENOGRAM
     Dosage: 3ML DILUTED TO VOLUME OF 6 ML
     Route: 042
     Dates: start: 20060207, end: 20060207
  18. PREDNISONE TAB [Concomitant]
     Indication: PAIN
     Dates: start: 20070823

REACTIONS (17)
  - NEPHROGENIC SYSTEMIC FIBROSIS [None]
  - SKIN FIBROSIS [None]
  - MOBILITY DECREASED [None]
  - PAIN IN EXTREMITY [None]
  - OEDEMA PERIPHERAL [None]
  - PAIN [None]
  - SKIN HYPERTROPHY [None]
  - PEAU D'ORANGE [None]
  - FIBROSIS [None]
  - GENERAL PHYSICAL HEALTH DETERIORATION [None]
  - PARAESTHESIA [None]
  - JOINT CONTRACTURE [None]
  - EXTREMITY CONTRACTURE [None]
  - BURNING SENSATION [None]
  - SKIN INDURATION [None]
  - SKIN TIGHTNESS [None]
  - JOINT RANGE OF MOTION DECREASED [None]
